FAERS Safety Report 4765230-8 (Version None)
Quarter: 2005Q3

REPORT INFORMATION
  Report Type: 
  Country: None (occurrence: None)
  Receive Date: 20050906
  Receipt Date: 20050823
  Transmission Date: 20060218
  Serious: Yes (Disabling)
  Sender: FDA-Public Use
  Company Number: CIP05001987

PATIENT
  Age: 59 Year
  Sex: Female

DRUGS (1)
  1. OPTINATE(RISEDRONATE SODIUM) TABLET, 35MG [Suspect]
     Indication: OSTEOPOROSIS
     Dosage: 35 MG ONCE WEEKLY, ORAL
     Route: 048

REACTIONS (9)
  - ALVEOLITIS ALLERGIC [None]
  - DYSPNOEA [None]
  - FATIGUE [None]
  - GENERAL PHYSICAL HEALTH DETERIORATION [None]
  - HAEMOGLOBIN INCREASED [None]
  - OXYGEN SATURATION DECREASED [None]
  - RED BLOOD CELL SEDIMENTATION RATE INCREASED [None]
  - STRESS [None]
  - WEIGHT DECREASED [None]
